FAERS Safety Report 16661894 (Version 1)
Quarter: 2019Q3

REPORT INFORMATION
  Report Type: Other
  Country: BY (occurrence: BY)
  Receive Date: 20190802
  Receipt Date: 20190802
  Transmission Date: 20191004
  Serious: Yes (Other)
  Sender: FDA-Public Use
  Company Number: BY-VALIDUS PHARMACEUTICALS LLC-BY-2019VAL000351

PATIENT

DRUGS (1)
  1. ROCALTROL [Suspect]
     Active Substance: CALCITRIOL
     Indication: POST PROCEDURAL HYPOPARATHYROIDISM
     Dosage: 0.5 ?G, 1 IN 1 D
     Route: 065
     Dates: start: 20190325, end: 20190325

REACTIONS (4)
  - Hypoaesthesia [Recovered/Resolved]
  - Lacrimation increased [Recovered/Resolved]
  - Altered state of consciousness [Recovered/Resolved]
  - Headache [Recovered/Resolved]

NARRATIVE: CASE EVENT DATE: 20190325
